FAERS Safety Report 10112366 (Version 10)
Quarter: 2014Q3

REPORT INFORMATION
  Report Type: Report from Study
  Country: CA (occurrence: CA)
  Receive Date: 20140425
  Receipt Date: 20140917
  Transmission Date: 20150326
  Serious: Yes (Hospitalization, Other)
  Sender: FDA-Public Use
  Company Number: CA-ABBVIE-14P-028-1226725-00

PATIENT
  Sex: Female

DRUGS (6)
  1. HUMIRA [Suspect]
     Active Substance: ADALIMUMAB
     Indication: PERIPHERAL SWELLING
     Route: 058
     Dates: start: 20131201, end: 20140404
  2. HUMIRA [Suspect]
     Active Substance: ADALIMUMAB
     Indication: ERYTHEMA
     Route: 058
     Dates: start: 20140705
  3. METHOTREXATE [Suspect]
     Active Substance: METHOTREXATE
     Indication: ARTHRITIS
     Dates: end: 20140505
  4. HUMIRA [Suspect]
     Active Substance: ADALIMUMAB
     Indication: PAIN
  5. HUMIRA [Suspect]
     Active Substance: ADALIMUMAB
     Indication: PAIN IN EXTREMITY
  6. HUMIRA [Suspect]
     Active Substance: ADALIMUMAB
     Indication: ARTHRITIS

REACTIONS (15)
  - Impaired healing [Not Recovered/Not Resolved]
  - Pain in extremity [Not Recovered/Not Resolved]
  - Peripheral swelling [Recovered/Resolved]
  - Foot operation [Unknown]
  - Skin infection [Unknown]
  - Hepatitis [Not Recovered/Not Resolved]
  - Pain [Recovered/Resolved]
  - Oedema peripheral [Unknown]
  - Wound [Unknown]
  - Localised infection [Recovered/Resolved]
  - Erythema [Recovered/Resolved]
  - Purulent discharge [Recovered/Resolved with Sequelae]
  - Erythema [Unknown]
  - Tenderness [Unknown]
  - Tenderness [Recovered/Resolved]

NARRATIVE: CASE EVENT DATE: 2014
